FAERS Safety Report 9272175 (Version 1)
Quarter: 2013Q2

REPORT INFORMATION
  Report Type: Report from Study
  Country: US (occurrence: US)
  Receive Date: 20130506
  Receipt Date: 20130506
  Transmission Date: 20140414
  Serious: Yes (Hospitalization, Other)
  Sender: FDA-Public Use
  Company Number: US-US-EMD SERONO, INC.-7208692

PATIENT
  Age: 68 Year
  Sex: Male

DRUGS (2)
  1. REBIF [Suspect]
     Indication: MULTIPLE SCLEROSIS
     Route: 058
     Dates: start: 20101012
  2. REBIF [Suspect]
     Route: 058
     Dates: start: 20130429

REACTIONS (6)
  - Alcohol problem [Recovering/Resolving]
  - Hip fracture [Recovered/Resolved]
  - Coordination abnormal [Unknown]
  - Fall [Recovered/Resolved]
  - Feeling abnormal [Unknown]
  - Pyrexia [Unknown]
